FAERS Safety Report 5794662-4 (Version None)
Quarter: 2008Q2

REPORT INFORMATION
  Report Type: 
  Country: None (occurrence: None)
  Receive Date: 20080627
  Receipt Date: 20080627
  Transmission Date: 20081010
  Serious: No
  Sender: FDA-Public Use
  Company Number: None

PATIENT
  Age: 86 Year
  Sex: Male

DRUGS (9)
  1. OXYCODONE AND ACETAMINOPHEN [Suspect]
     Indication: PAIN
     Dosage: TWICE TABS Q6PRN PO
     Route: 048
     Dates: start: 20080608, end: 20080609
  2. RANITIDINE HCL [Suspect]
     Indication: GASTROOESOPHAGEAL REFLUX DISEASE
     Dosage: 150MG Q12H PO
     Route: 048
     Dates: start: 20080604, end: 20080611
  3. ATENOLOL [Concomitant]
  4. VYTORIN [Concomitant]
  5. DIOVAN [Concomitant]
  6. ZANTAC [Concomitant]
  7. HYDROCHLOROTHIAZIDE [Concomitant]
  8. COUMADIN [Concomitant]
  9. HEPARIN [Concomitant]

REACTIONS (1)
  - HALLUCINATION [None]
